FAERS Safety Report 14582385 (Version 1)
Quarter: 2018Q1

REPORT INFORMATION
  Report Type: Spontaneous
  Country: US (occurrence: US)
  Receive Date: 20180228
  Receipt Date: 20180228
  Transmission Date: 20180509
  Serious: Yes (Death)
  Sender: FDA-Public Use
  Company Number: US-BEH-2018088303

PATIENT
  Age: 80 Year
  Sex: Female
  Weight: 54.4 kg

DRUGS (21)
  1. REGLAN [Concomitant]
     Active Substance: METOCLOPRAMIDE HYDROCHLORIDE
  2. MUCINEX [Concomitant]
     Active Substance: GUAIFENESIN
  3. HEPARIN [Concomitant]
     Active Substance: HEPARIN SODIUM
  4. VENTOLIN [Concomitant]
     Active Substance: ALBUTEROL SULFATE
  5. PRIVIGEN [Suspect]
     Active Substance: HUMAN IMMUNOGLOBULIN G
     Indication: ALPHA-1 ANTI-TRYPSIN DEFICIENCY
     Dosage: 30 G, QMT
     Route: 042
     Dates: start: 20110617
  6. ADVAIR HFA [Concomitant]
     Active Substance: FLUTICASONE PROPIONATE\SALMETEROL XINAFOATE
  7. ACETAMINOPHEN. [Concomitant]
     Active Substance: ACETAMINOPHEN
  8. SPIRIVA [Concomitant]
     Active Substance: TIOTROPIUM BROMIDE MONOHYDRATE
  9. MORPHINE SULFATE. [Concomitant]
     Active Substance: MORPHINE SULFATE
  10. ELIQUIS [Concomitant]
     Active Substance: APIXABAN
  11. MULTIVITAMINS [Concomitant]
     Active Substance: VITAMINS
  12. ZOFRAN [Concomitant]
     Active Substance: ONDANSETRON HYDROCHLORIDE
  13. DIPHENHYDRAMINE. [Concomitant]
     Active Substance: DIPHENHYDRAMINE
  14. LMX                                /00033401/ [Concomitant]
  15. PRIVIGEN [Suspect]
     Active Substance: HUMAN IMMUNOGLOBULIN G
     Indication: IMMUNODEFICIENCY
     Dosage: UNK
     Route: 042
  16. SODIUM CHLORIDE. [Concomitant]
     Active Substance: SODIUM CHLORIDE
  17. EPINEPHRINE. [Concomitant]
     Active Substance: EPINEPHRINE
  18. PRIVIGEN [Suspect]
     Active Substance: HUMAN IMMUNOGLOBULIN G
     Indication: HYPOGAMMAGLOBULINAEMIA
  19. COMPAZINE                          /00013302/ [Concomitant]
     Active Substance: PROCHLORPERAZINE EDISYLATE
  20. OXYGEN. [Concomitant]
     Active Substance: OXYGEN
  21. VITAMIN D                          /00107901/ [Concomitant]
     Active Substance: ERGOCALCIFEROL

REACTIONS (1)
  - Death [Fatal]

NARRATIVE: CASE EVENT DATE: 20180211
